FAERS Safety Report 7736885-0 (Version None)
Quarter: 2011Q3

REPORT INFORMATION
  Report Type: 
  Country: None (occurrence: None)
  Receive Date: 20110908
  Receipt Date: 20110901
  Transmission Date: 20111222
  Serious: Yes (Hospitalization, Other)
  Sender: FDA-Public Use
  Company Number: TH-PFIZER INC-2011205715

PATIENT
  Age: 74 Year
  Sex: Female

DRUGS (4)
  1. VALPROIC ACID [Interacting]
     Indication: CONVULSION
     Dosage: 1200 MG, 1X/DAY
  2. PHENYTOIN SODIUM [Suspect]
     Indication: CONVULSION
     Dosage: 1050 MG, 1X/DAY
  3. VALPROIC ACID [Interacting]
     Dosage: 2400 MG, 1X/DAY
  4. PIPERACILLIN AND TAZOBACTAM [Concomitant]
     Indication: PNEUMONIA
     Dosage: UNK

REACTIONS (3)
  - DRUG INTERACTION [None]
  - BLOOD BILIRUBIN INCREASED [None]
  - DRUG LEVEL INCREASED [None]
